FAERS Safety Report 16676695 (Version 1)
Quarter: 2019Q3

REPORT INFORMATION
  Report Type: Spontaneous
  Country: FR (occurrence: FR)
  Receive Date: 20190807
  Receipt Date: 20190807
  Transmission Date: 20191004
  Serious: Yes (Hospitalization, Other)
  Sender: FDA-Public Use
  Company Number: FR-AUROBINDO-AUR-APL-2019-045530

PATIENT

DRUGS (7)
  1. LIDOCAINE. [Suspect]
     Active Substance: LIDOCAINE
     Indication: ANAESTHESIA
     Dosage: 150 MILLIGRAM
     Route: 042
     Dates: start: 20190709, end: 20190709
  2. ROSUVASTATIN. [Suspect]
     Active Substance: ROSUVASTATIN
     Indication: ANTIBIOTIC PROPHYLAXIS
     Dosage: 80 MILLIGRAM
     Route: 042
     Dates: start: 20190709, end: 20190709
  3. SUFENTANIL [Suspect]
     Active Substance: SUFENTANIL
     Indication: ANAESTHESIA
     Dosage: 60 MICROGRAM
     Route: 042
     Dates: start: 20190709, end: 20190709
  4. PROPOFOL. [Suspect]
     Active Substance: PROPOFOL
     Indication: ANAESTHESIA
     Dosage: 350 MILLIGRAM
     Route: 042
     Dates: start: 20190709, end: 20190709
  5. KETAMINE [Suspect]
     Active Substance: KETAMINE
     Indication: ANAESTHESIA
     Dosage: 30 MILLIGRAM
     Route: 042
     Dates: start: 20190709, end: 20190709
  6. DEXAMETHASONE. [Suspect]
     Active Substance: DEXAMETHASONE
     Indication: SURGERY
     Dosage: 8 MILLIGRAM
     Route: 042
     Dates: start: 20190709, end: 20190709
  7. CEFAZOLINE MYLAN [Suspect]
     Active Substance: CEFAZOLIN SODIUM
     Indication: SURGERY
     Dosage: 4 GRAM
     Route: 042
     Dates: start: 20190709, end: 20190709

REACTIONS (1)
  - Anaphylactic shock [Recovered/Resolved]

NARRATIVE: CASE EVENT DATE: 20190709
